FAERS Safety Report 15250168 (Version 4)
Quarter: 2019Q4

REPORT INFORMATION
  Report Type: Spontaneous
  Country: CO (occurrence: CO)
  Receive Date: 20180807
  Receipt Date: 20191015
  Transmission Date: 20200122
  Serious: Yes (Hospitalization, Disabling, Other)
  Sender: FDA-Public Use
  Company Number: CO-PFIZER INC-2018315098

PATIENT
  Age: 80 Year
  Sex: Female

DRUGS (1)
  1. XELJANZ [Suspect]
     Active Substance: TOFACITINIB CITRATE
     Indication: RHEUMATOID ARTHRITIS
     Dosage: 5 MG, 2X/DAY
     Route: 048
     Dates: start: 2015, end: 201904

REACTIONS (7)
  - Hip fracture [Recovering/Resolving]
  - Gait inability [Unknown]
  - Femur fracture [Unknown]
  - Fall [Recovering/Resolving]
  - Lower limb fracture [Unknown]
  - Device dislocation [Unknown]
  - Accident [Unknown]

NARRATIVE: CASE EVENT DATE: 201806
